FAERS Safety Report 7469574-0 (Version None)
Quarter: 2011Q2

REPORT INFORMATION
  Report Type: 
  Country: None (occurrence: None)
  Receive Date: 20110510
  Receipt Date: 20110503
  Transmission Date: 20111010
  Serious: No
  Sender: FDA-Public Use
  Company Number: FR-SANOFI-AVENTIS-2010SA034246

PATIENT
  Age: 40 Year
  Sex: Female

DRUGS (6)
  1. ACETAMINOPHEN [Concomitant]
  2. ORAL CONTRACEPTIVE NOS [Concomitant]
  3. ARAVA [Suspect]
     Route: 048
     Dates: start: 20071101, end: 20100525
  4. MOPRAL [Concomitant]
  5. ANTIINFLAMMATORY/ANTIRHEUMATIC NON-STEROIDS [Concomitant]
     Dates: end: 20100501
  6. ARAVA [Suspect]
     Indication: RHEUMATOID ARTHRITIS
     Route: 048
     Dates: start: 20071001, end: 20071101

REACTIONS (2)
  - OFF LABEL USE [None]
  - DRUG EXPOSURE DURING PREGNANCY [None]
